FAERS Safety Report 5752363-2 (Version None)
Quarter: 2008Q2

REPORT INFORMATION
  Report Type: 
  Country: None (occurrence: None)
  Receive Date: 20080527
  Receipt Date: 20080515
  Transmission Date: 20081010
  Serious: Yes (Hospitalization)
  Sender: FDA-Public Use
  Company Number: CLOF-10572

PATIENT
  Age: 81 Year
  Sex: Male
  Weight: 64.6 kg

DRUGS (29)
  1. CLOFARABINE [Suspect]
     Indication: ACUTE MYELOID LEUKAEMIA
     Dosage: 30 MG/M2, QDX5, INTRAVENOUS
     Route: 042
     Dates: start: 20070612, end: 20070616
  2. CEFEPIME [Concomitant]
  3. MOXIFLOXACIN HCL [Concomitant]
  4. ACYCLOVIR [Concomitant]
  5. VANCOMYCIN [Concomitant]
  6. EZETIMIBE [Concomitant]
  7. PLAVIX [Concomitant]
  8. AZITHROMYCIN [Concomitant]
  9. ALLOPURINOL [Concomitant]
  10. HEPARIN [Concomitant]
  11. IPRATROPIUM BROMIDE [Concomitant]
  12. SODIUM CHLORIDE 0.9% [Concomitant]
  13. ACETAMINOPHEN [Concomitant]
  14. ALBUTEROL [Concomitant]
  15. HYDROCORTISONE [Concomitant]
  16. ONDANSETRON HCL [Concomitant]
  17. DEXTROSE [Concomitant]
  18. SODIUM BICARBONATE IN PLASTIC CONTAINER [Concomitant]
  19. LOPERAMIDE [Concomitant]
  20. OCTREOTIDE ACETATE [Concomitant]
  21. DIPHENHYDRAMINE HCL [Concomitant]
  22. LIPITOR [Concomitant]
  23. ALLOPURINOL [Concomitant]
  24. CIPROFLOXACIN [Concomitant]
  25. HYDROCORTISONE [Concomitant]
  26. POTASSIUM CHLORIDE [Concomitant]
  27. VORINCONAZOLE (VORICONAZOLE) [Concomitant]
  28. COMPAZINE [Concomitant]
  29. PANTOPRAZOLE SODIUM [Concomitant]

REACTIONS (16)
  - ANGINA PECTORIS [None]
  - BONE MARROW FAILURE [None]
  - CATHETER SITE INFECTION [None]
  - CORYNEBACTERIUM INFECTION [None]
  - COUGH [None]
  - DIARRHOEA [None]
  - DYSPNOEA EXERTIONAL [None]
  - FEBRILE NEUTROPENIA [None]
  - GASTROINTESTINAL HAEMORRHAGE [None]
  - PANCYTOPENIA [None]
  - PLEURAL EFFUSION [None]
  - PNEUMONIA [None]
  - STAPHYLOCOCCAL INFECTION [None]
  - THROMBOCYTOPENIA [None]
  - UPPER GASTROINTESTINAL HAEMORRHAGE [None]
  - URINARY TRACT INFECTION STAPHYLOCOCCAL [None]
